FAERS Safety Report 14656995 (Version 1)
Quarter: 2018Q1

REPORT INFORMATION
  Report Type: Spontaneous
  Country: US (occurrence: US)
  Receive Date: 20180319
  Receipt Date: 20180319
  Transmission Date: 20180509
  Serious: Yes (Hospitalization, Other)
  Sender: FDA-Public Use
  Company Number: US-SA-2017SA266221

PATIENT
  Age: 39 Year
  Sex: Female

DRUGS (3)
  1. AUGMENTIN [Suspect]
     Active Substance: AMOXICILLIN\CLAVULANATE POTASSIUM
     Indication: SINUSITIS
     Route: 065
  2. LIDOCAINE. [Concomitant]
     Active Substance: LIDOCAINE
     Indication: NERVE BLOCK
     Dosage: 4 ML OF 2% LIDOCAINE SOLUTION
     Route: 008
  3. TRIAMCINOLONE ACETONIDE. [Suspect]
     Active Substance: TRIAMCINOLONE ACETONIDE
     Indication: NERVE BLOCK
     Dosage: 5 ML OF SOLUTION CONSISTING OF 4 ML OF 2% LIDOCAINE AND 1ML OF TRIAMCINOLONE 40MG/ML
     Route: 008

REACTIONS (7)
  - Dermatitis [Unknown]
  - Erythema multiforme [Unknown]
  - Condition aggravated [Unknown]
  - Skin lesion [Unknown]
  - Hypophagia [Unknown]
  - Oral disorder [Unknown]
  - Pain [Unknown]
